FAERS Safety Report 4411290-3 (Version None)
Quarter: 2004Q3

REPORT INFORMATION
  Report Type: 
  Country: None (occurrence: None)
  Receive Date: 20040727
  Receipt Date: 20040714
  Transmission Date: 20050211
  Serious: Yes (Other)
  Sender: FDA-Public Use
  Company Number: 2004048109

PATIENT
  Sex: Female

DRUGS (3)
  1. SERTRALINE HCL [Suspect]
     Indication: ILL-DEFINED DISORDER
     Dosage: ORAL
     Route: 048
  2. LAMOTRIGINE [Suspect]
     Indication: DEPRESSION
     Dosage: 100 MG (25 MG, 1 IN 1 D), ORAL
     Route: 048
  3. TRAZODONE HCL [Concomitant]

REACTIONS (5)
  - DRUG INTERACTION [None]
  - DYSPHASIA [None]
  - EYELID FUNCTION DISORDER [None]
  - OPHTHALMOPLEGIA [None]
  - THERAPEUTIC AGENT TOXICITY [None]
